FAERS Safety Report 11626234 (Version 4)
Quarter: 2015Q4

REPORT INFORMATION
  Report Type: Spontaneous
  Country: IT (occurrence: IT)
  Receive Date: 20151013
  Receipt Date: 20151027
  Transmission Date: 20160304
  Serious: Yes (Other)
  Sender: FDA-Public Use
  Company Number: PHHY2015IT122443

PATIENT
  Age: 39 Year
  Sex: Female

DRUGS (12)
  1. LORAZEPAM. [Suspect]
     Active Substance: LORAZEPAM
     Indication: PSYCHOTIC DISORDER
  2. LORAZEPAM. [Suspect]
     Active Substance: LORAZEPAM
     Indication: OBSESSIVE-COMPULSIVE DISORDER
  3. QUETIAPINE [Suspect]
     Active Substance: QUETIAPINE
     Indication: PSYCHOTIC DISORDER
  4. QUETIAPINE [Suspect]
     Active Substance: QUETIAPINE
     Indication: OBSESSIVE-COMPULSIVE DISORDER
  5. ZUCLOPENTHIXOL DECANOATE [Suspect]
     Active Substance: ZUCLOPENTHIXOL DECANOATE
     Indication: PSYCHOTIC DISORDER
  6. LITHIUM CARBONATE. [Suspect]
     Active Substance: LITHIUM CARBONATE
     Indication: BIPOLAR DISORDER
     Dosage: 900 MG, QD
     Route: 048
  7. LITHIUM CARBONATE. [Suspect]
     Active Substance: LITHIUM CARBONATE
     Indication: OBSESSIVE-COMPULSIVE DISORDER
  8. ZUCLOPENTHIXOL DECANOATE [Suspect]
     Active Substance: ZUCLOPENTHIXOL DECANOATE
     Indication: BIPOLAR DISORDER
     Dosage: 200 MG, UNK
     Route: 030
  9. ZUCLOPENTHIXOL DECANOATE [Suspect]
     Active Substance: ZUCLOPENTHIXOL DECANOATE
     Indication: OBSESSIVE-COMPULSIVE DISORDER
  10. LORAZEPAM. [Suspect]
     Active Substance: LORAZEPAM
     Indication: BIPOLAR DISORDER
     Dosage: 1.25 MG, QD
     Route: 048
  11. LITHIUM CARBONATE. [Suspect]
     Active Substance: LITHIUM CARBONATE
     Indication: PSYCHOTIC DISORDER
  12. QUETIAPINE [Suspect]
     Active Substance: QUETIAPINE
     Indication: BIPOLAR DISORDER
     Dosage: 25 MG, QD
     Route: 048

REACTIONS (8)
  - Electrocardiogram QT prolonged [Recovering/Resolving]
  - Hypothyroidism [Unknown]
  - Extrapyramidal disorder [Recovering/Resolving]
  - Feeling abnormal [Recovering/Resolving]
  - Obesity [Recovering/Resolving]
  - Cotard^s syndrome [Recovering/Resolving]
  - Overweight [Unknown]
  - Metabolic disorder [Recovering/Resolving]
